FAERS Safety Report 7009997-7 (Version None)
Quarter: 2010Q3

REPORT INFORMATION
  Report Type: 
  Country: None (occurrence: None)
  Receive Date: 20100923
  Receipt Date: 20100920
  Transmission Date: 20110219
  Serious: Yes (Other)
  Sender: FDA-Public Use
  Company Number: US-CEPHALON-2010004777

PATIENT
  Sex: Female

DRUGS (1)
  1. PROVIGIL [Suspect]
     Indication: MEDICAL DIET
     Route: 048

REACTIONS (7)
  - ABNORMAL BEHAVIOUR [None]
  - ANGER [None]
  - LOGORRHOEA [None]
  - PHYSICAL ASSAULT [None]
  - ROAD TRAFFIC ACCIDENT [None]
  - SELF INJURIOUS BEHAVIOUR [None]
  - THINKING ABNORMAL [None]
